FAERS Safety Report 24575556 (Version 1)
Quarter: 2024Q4

REPORT INFORMATION
  Report Type: Spontaneous
  Country: US (occurrence: None)
  Receive Date: 20241101
  Receipt Date: 20241101
  Transmission Date: 20250114
  Serious: Yes (Other)
  Sender: Public
  Company Number: None

PATIENT
  Age: 55 Year
  Sex: Male
  Weight: 73.48 kg

DRUGS (6)
  1. JULUCA [Suspect]
     Active Substance: DOLUTEGRAVIR SODIUM\RILPIVIRINE HYDROCHLORIDE
     Indication: HIV infection
     Dosage: 50/25 MG DAILY ORAL ?
     Route: 048
     Dates: start: 20240716, end: 20241028
  2. GENVOYA (150/150/200TAF10) TABLETS [Concomitant]
  3. EMTRICITABINE/TENOF 200-300MG [Concomitant]
  4. LOPERAMIDE 2MG CAPSULES [Concomitant]
  5. OLANZAPINE [Concomitant]
     Active Substance: OLANZAPINE
  6. ONDANSETRON 6MG [Concomitant]

REACTIONS (4)
  - Mood swings [None]
  - Depression [None]
  - Suicidal ideation [None]
  - Weight decreased [None]

NARRATIVE: CASE EVENT DATE: 20241028
